FAERS Safety Report 4319866-9 (Version None)
Quarter: 2004Q1

REPORT INFORMATION
  Report Type: 
  Country: None (occurrence: None)
  Receive Date: 20040316
  Receipt Date: 20040301
  Transmission Date: 20041129
  Serious: Yes (Hospitalization, Other)
  Sender: FDA-Public Use
  Company Number: US067939

PATIENT
  Age: 86 Year
  Sex: Male

DRUGS (5)
  1. EPOGEN [Suspect]
     Indication: DIALYSIS
     Dosage: 10000 U, 3 IN 1 WEEKS
     Dates: start: 20031116
  2. METOPROLOL TARTRATE [Concomitant]
  3. AMLODIPINE BESYLATE [Concomitant]
  4. ISOSORBIDE MONONITRATE [Concomitant]
  5. PARICALCITOL [Concomitant]

REACTIONS (4)
  - ASTHENIA [None]
  - BONE MARROW DEPRESSION [None]
  - DRUG INEFFECTIVE [None]
  - DYSPNOEA EXERTIONAL [None]
